FAERS Safety Report 9464068 (Version 1)
Quarter: 2013Q3

REPORT INFORMATION
  Report Type: Not Available
  Country: GB (occurrence: GB)
  Receive Date: 20130819
  Receipt Date: 20130819
  Transmission Date: 20140515
  Serious: Yes (Hospitalization)
  Sender: FDA-Public Use
  Company Number: GB-PURDUE-GBR-2013-0015244

PATIENT
  Age: 86 Year
  Sex: Male

DRUGS (8)
  1. UNIPHYLLIN CONTINUS [Suspect]
     Indication: ASTHMA
     Dosage: 200 MG, BID
     Route: 048
     Dates: start: 201104
  2. TRAMADOL HCL [Concomitant]
  3. ALENDRONIC ACID [Concomitant]
  4. CALCIUM + VITAMIN D [Concomitant]
  5. CO-BENELDOPA [Concomitant]
  6. SALBUTAMOL [Concomitant]
  7. SERETIDE [Concomitant]
  8. TIOTROPIUM [Concomitant]

REACTIONS (3)
  - Aggression [Unknown]
  - Confusional state [Not Recovered/Not Resolved]
  - Diarrhoea [Not Recovered/Not Resolved]
